FAERS Safety Report 9094067 (Version 1)
Quarter: 2013Q1

REPORT INFORMATION
  Report Type: Spontaneous
  Country: US (occurrence: None)
  Receive Date: 20130122
  Receipt Date: 20130122
  Transmission Date: 20140127
  Serious: Yes (Death)
  Sender: FDA-Public Use
  Company Number: 1552666

PATIENT
  Age: 20 Year
  Sex: Male

DRUGS (2)
  1. CODEINE [Suspect]
  2. HEROIN [Suspect]

REACTIONS (5)
  - Drug abuse [None]
  - Self-medication [None]
  - Cardiac arrest [None]
  - Respiratory arrest [None]
  - Toxicity to various agents [None]
